FAERS Safety Report 12467815 (Version 1)
Quarter: 2016Q2

REPORT INFORMATION
  Report Type: Report from Study
  Country: PA (occurrence: PA)
  Receive Date: 20160615
  Receipt Date: 20160615
  Transmission Date: 20160815
  Serious: Yes (Hospitalization)
  Sender: FDA-Public Use
  Company Number: PA-ABBVIE-16P-125-1649305-00

PATIENT
  Age: 64 Year
  Sex: Male

DRUGS (1)
  1. ZEMPLAR [Suspect]
     Active Substance: PARICALCITOL
     Indication: PRODUCT USED FOR UNKNOWN INDICATION
     Dosage: DURING HAEMODIALYSIS
     Route: 042
     Dates: start: 20091201

REACTIONS (4)
  - Pain in extremity [Unknown]
  - Productive cough [Unknown]
  - Diarrhoea [Unknown]
  - Wound [Unknown]

NARRATIVE: CASE EVENT DATE: 201605
